FAERS Safety Report 8501512-1 (Version None)
Quarter: 2012Q3

REPORT INFORMATION
  Report Type: 
  Country: None (occurrence: None)
  Receive Date: 20120710
  Receipt Date: 20120705
  Transmission Date: 20120928
  Serious: Yes (Other)
  Sender: FDA-Public Use
  Company Number: CA-ABBOTT-12P-028-0950071-00

PATIENT
  Sex: Female
  Weight: 70.824 kg

DRUGS (2)
  1. HUMIRA [Suspect]
     Indication: RHEUMATOID ARTHRITIS
     Route: 058
     Dates: start: 20040830, end: 20120101
  2. HUMIRA [Suspect]
     Route: 058
     Dates: start: 20120615

REACTIONS (3)
  - JOINT SURGERY [None]
  - DEEP VEIN THROMBOSIS [None]
  - THROMBOSIS [None]
